FAERS Safety Report 7633589-X (Version None)
Quarter: 2011Q3

REPORT INFORMATION
  Report Type: 
  Country: None (occurrence: None)
  Receive Date: 20110725
  Receipt Date: 20110720
  Transmission Date: 20111222
  Serious: Yes (Other)
  Sender: FDA-Public Use
  Company Number: US-GLAXOSMITHKLINE-A0909833A

PATIENT
  Age: 83 Year
  Sex: Female

DRUGS (4)
  1. COREG CR [Suspect]
     Indication: HYPERTENSION
     Route: 048
  2. METFORMIN HCL [Concomitant]
  3. IV ANTIBIOTICS [Concomitant]
  4. CARVEDILOL [Suspect]
     Indication: HYPERTENSION
     Route: 048

REACTIONS (5)
  - DRUG INEFFECTIVE [None]
  - JOINT SWELLING [None]
  - BLOOD PRESSURE INADEQUATELY CONTROLLED [None]
  - ATRIAL FIBRILLATION [None]
  - BLOOD PRESSURE INCREASED [None]
